FAERS Safety Report 20771587 (Version 1)
Quarter: 2022Q2

REPORT INFORMATION
  Report Type: Spontaneous
  Country: GB (occurrence: GB)
  Receive Date: 20220430
  Receipt Date: 20220430
  Transmission Date: 20220721
  Serious: Yes (Hospitalization, Other)
  Sender: FDA-Public Use
  Company Number: GB-002147023-NVSC2022GB075308

PATIENT
  Sex: Female

DRUGS (4)
  1. PREDNISOLONE [Suspect]
     Active Substance: PREDNISOLONE
     Indication: Product used for unknown indication
     Dosage: UNK UNK, TIW, FREQUENCY : 1 , FREQUENCY TIME : 3 WEEKS, (MANUFACTURER UNKNOWN) 5 MG
     Route: 065
  2. AZATHIOPRINE [Suspect]
     Active Substance: AZATHIOPRINE
     Indication: Product used for unknown indication
     Dosage: UNK UNK, QD (STRENGTH: 75 MG), FREQUENCY :1 , FREQUENCY TIME : 1 DAYS
     Route: 065
  3. NEORAL [Suspect]
     Active Substance: CYCLOSPORINE
     Indication: Product used for unknown indication
     Dosage: UNK UNK, QD (STRENGTH: 75 MG), FREQUENCY : 1 , FREQUENCY TIME : 1 DAYS
     Route: 065
  4. NEORAL [Suspect]
     Active Substance: CYCLOSPORINE
     Dosage: UNK UNK, QD (STRENGTH: 50 MG), FREQUENCY : 1 , FREQUENCY TIME : 1 DAYS
     Route: 065

REACTIONS (2)
  - Neoplasm malignant [Unknown]
  - Feeling abnormal [Unknown]
